FAERS Safety Report 7109659-1 (Version None)
Quarter: 2010Q4

REPORT INFORMATION
  Report Type: 
  Country: None (occurrence: None)
  Receive Date: 20101115
  Receipt Date: 20101115
  Transmission Date: 20110411
  Serious: No
  Sender: FDA-Public Use
  Company Number: None

PATIENT
  Age: 52 Year
  Sex: Female
  Weight: 67.1324 kg

DRUGS (1)
  1. CYMBALTA [Suspect]
     Indication: ANXIETY
     Dosage: 1 TABLET 1 A DAY PO
     Route: 048
     Dates: start: 20100425, end: 20101026

REACTIONS (2)
  - FLANK PAIN [None]
  - IMPAIRED GASTRIC EMPTYING [None]
